FAERS Safety Report 10180479 (Version 1)
Quarter: 2014Q2

REPORT INFORMATION
  Report Type: Spontaneous
  Country: US (occurrence: US)
  Receive Date: 20140519
  Receipt Date: 20140519
  Transmission Date: 20141212
  Serious: No
  Sender: FDA-Public Use
  Company Number: US-AMGEN INC.-USASP2014001424

PATIENT
  Age: 64 Year
  Sex: Female

DRUGS (8)
  1. PROLIA [Suspect]
     Indication: PRODUCT USED FOR UNKNOWN INDICATION
     Dosage: UNK
     Route: 065
  2. KLONOPIN [Concomitant]
     Indication: HOT FLUSH
     Dosage: UNK
     Route: 065
  3. VITAMINS                           /00067501/ [Concomitant]
     Dosage: UNK
     Route: 065
  4. CITRACAL                           /00751520/ [Concomitant]
     Dosage: UNK
     Route: 065
  5. VITAMIN D3 [Concomitant]
     Dosage: UNK
     Route: 065
  6. OSTEO BI-FLEX                      /01431201/ [Concomitant]
     Dosage: UNK
     Route: 065
  7. VITAMIN B12                        /00056201/ [Concomitant]
     Dosage: UNK
     Route: 065
  8. ZINC [Concomitant]
     Dosage: UNK
     Route: 065

REACTIONS (3)
  - Fall [Unknown]
  - Abscess limb [Recovered/Resolved]
  - Bacterial infection [Unknown]
